FAERS Safety Report 19938707 (Version 2)
Quarter: 2021Q4

REPORT INFORMATION
  Report Type: Report from Study
  Country: AR (occurrence: AR)
  Receive Date: 20211011
  Receipt Date: 20211112
  Transmission Date: 20220304
  Serious: Yes (Life-Threatening, Hospitalization)
  Sender: FDA-Public Use
  Company Number: AR-NOVARTISPH-NVSC2021AR231400

PATIENT
  Sex: Female

DRUGS (1)
  1. AFINITOR [Suspect]
     Active Substance: EVEROLIMUS
     Indication: Neuroendocrine tumour
     Dosage: 5 MG, QD
     Route: 048
     Dates: start: 20201105

REACTIONS (6)
  - Cerebrovascular accident [Unknown]
  - Seizure [Unknown]
  - Tooth loss [Unknown]
  - Anaemia [Unknown]
  - Gait disturbance [Unknown]
  - Feeling abnormal [Unknown]
